FAERS Safety Report 18724179 (Version 1)
Quarter: 2021Q1

REPORT INFORMATION
  Report Type: Spontaneous
  Country: US (occurrence: US)
  Receive Date: 20210108
  Receipt Date: 20210108
  Transmission Date: 20210419
  Serious: Yes (Hospitalization)
  Sender: FDA-Public Use
  Company Number: None

PATIENT
  Age: 35 Year
  Sex: Male

DRUGS (6)
  1. CIPROFLOXACN [Concomitant]
     Active Substance: CIPROFLOXACIN
  2. DOK [Concomitant]
     Active Substance: DOCUSATE SODIUM
  3. TRAMADOL HCL [Concomitant]
     Active Substance: TRAMADOL HYDROCHLORIDE
  4. ENTECAVIR 0.5MG TAB [Suspect]
     Active Substance: ENTECAVIR
     Indication: CHRONIC HEPATITIS B
     Route: 048
     Dates: start: 20200709
  5. HYDROCO/APAP [Concomitant]
     Active Substance: ACETAMINOPHEN\HYDROCODONE
  6. SMZ/TMP DS [Concomitant]
     Active Substance: SULFAMETHOXAZOLE\TRIMETHOPRIM

REACTIONS (1)
  - Urethral repair [None]

NARRATIVE: CASE EVENT DATE: 20201123
